FAERS Safety Report 9144794 (Version 1)
Quarter: 2013Q1

REPORT INFORMATION
  Report Type: Spontaneous
  Country: US (occurrence: US)
  Receive Date: 20130306
  Receipt Date: 20130306
  Transmission Date: 20140127
  Serious: Yes (Other)
  Sender: FDA-Public Use
  Company Number: US-AMGEN-USASP2013013978

PATIENT
  Age: 55 Year
  Sex: Female
  Weight: 77.1 kg

DRUGS (7)
  1. ENBREL [Suspect]
     Indication: PRODUCT USED FOR UNKNOWN INDICATION
     Dosage: 50 MG, QWK
     Route: 058
  2. CELEBREX [Concomitant]
     Dosage: 50 MG, UNK
  3. DOXYCYCLINE [Concomitant]
     Dosage: 75 MG, UNK
  4. LEXAPRO [Concomitant]
     Dosage: 10 MG, UNK
  5. FISH OIL [Concomitant]
     Dosage: UNK
  6. CALCIUM [Concomitant]
     Dosage: 500 UNK, UNK
  7. ASA [Concomitant]
     Dosage: LOW DOSE 81 MG, EC

REACTIONS (1)
  - Amnesia [Unknown]
